FAERS Safety Report 24989207 (Version 1)
Quarter: 2025Q1

REPORT INFORMATION
  Report Type: Report from Study
  Country: GB (occurrence: GB)
  Receive Date: 20250220
  Receipt Date: 20250220
  Transmission Date: 20250408
  Serious: Yes (Death)
  Sender: ROCHE
  Company Number: GB-ROCHE-10000206171

PATIENT

DRUGS (1)
  1. ATEZOLIZUMAB [Suspect]
     Active Substance: ATEZOLIZUMAB
     Indication: Non-small cell lung cancer
     Route: 065

REACTIONS (4)
  - Pneumonitis [Fatal]
  - Pericarditis [Fatal]
  - Colitis [Fatal]
  - Disseminated intravascular coagulation [Fatal]
